FAERS Safety Report 12544057 (Version 1)
Quarter: 2016Q3

REPORT INFORMATION
  Report Type: Report from Study
  Country: RU (occurrence: RU)
  Receive Date: 20160711
  Receipt Date: 20160711
  Transmission Date: 20161109
  Serious: Yes (Death, Hospitalization, Other)
  Sender: FDA-Public Use
  Company Number: RU-GLAXOSMITHKLINE-B0578074A

PATIENT
  Age: 67 Year
  Sex: Male
  Weight: 61 kg

DRUGS (11)
  1. ELOXATIN (OXALIPLATIN) [Suspect]
     Active Substance: OXALIPLATIN
     Indication: GASTRIC CANCER
     Route: 042
     Dates: start: 20090527, end: 20090604
  2. VALPROATE SODIUM. [Concomitant]
     Active Substance: VALPROATE SODIUM
     Indication: EPILEPSY
     Route: 048
     Dates: start: 2005
  3. BLINDED CAPECITABINE [Suspect]
     Active Substance: CAPECITABINE
     Indication: GASTRIC CANCER
     Route: 048
     Dates: start: 20090527, end: 20090604
  4. BLINDED OXALIPLATIN [Suspect]
     Active Substance: OXALIPLATIN
     Indication: GASTRIC CANCER
     Route: 048
     Dates: start: 20090527, end: 20090604
  5. BLINDED CAPECITABINE [Suspect]
     Active Substance: CAPECITABINE
     Indication: GASTRIC CANCER
     Route: 048
     Dates: start: 20090527, end: 20090604
  6. BLINDED OXALIPLATIN [Suspect]
     Active Substance: OXALIPLATIN
     Indication: GASTRIC CANCER
     Route: 048
     Dates: start: 20090527, end: 20090604
  7. BLINDED LAPATINIB TOSILATE [Suspect]
     Active Substance: LAPATINIB DITOSYLATE
     Indication: GASTRIC CANCER
     Route: 048
     Dates: start: 20090527, end: 20090604
  8. BLINDED NO THERAPY [Suspect]
     Active Substance: UNSPECIFIED INGREDIENT
     Indication: GASTRIC CANCER
     Route: 048
     Dates: start: 20090527, end: 20090604
  9. XELODA [Suspect]
     Active Substance: CAPECITABINE
     Route: 048
     Dates: start: 20090527, end: 20090605
  10. BLINDED LAPATINIB TOSILATE [Suspect]
     Active Substance: LAPATINIB DITOSYLATE
     Indication: GASTRIC CANCER
     Route: 048
     Dates: start: 20090527, end: 20090604
  11. BLINDED PLACEBO [Suspect]
     Active Substance: INVESTIGATIONAL PRODUCT
     Indication: GASTRIC CANCER
     Route: 048
     Dates: start: 20090527, end: 20090604

REACTIONS (17)
  - Chest pain [Unknown]
  - Pyrexia [Unknown]
  - Oedema peripheral [Unknown]
  - Atrial fibrillation [Recovered/Resolved]
  - Pulmonary infarction [Not Recovered/Not Resolved]
  - Pneumonia [Recovered/Resolved]
  - Fatigue [Not Recovered/Not Resolved]
  - Acute myocardial infarction [Fatal]
  - Pulmonary embolism [Not Recovered/Not Resolved]
  - Deep vein thrombosis [Not Recovered/Not Resolved]
  - Myocardial infarction [Unknown]
  - Vomiting [Unknown]
  - Diarrhoea [Unknown]
  - Hiccups [Unknown]
  - Productive cough [Unknown]
  - Ejection fraction decreased [Recovered/Resolved]
  - Venous thrombosis [Unknown]

NARRATIVE: CASE EVENT DATE: 20090605
